FAERS Safety Report 24397418 (Version 4)
Quarter: 2025Q1

REPORT INFORMATION
  Report Type: Report from Study
  Country: US (occurrence: US)
  Receive Date: 20241004
  Receipt Date: 20250207
  Transmission Date: 20250408
  Serious: Yes (Other)
  Sender: SUNOVION
  Company Number: US-SUMITOMO PHARMA SWITZERLAND GMBH-2024SPA003221

PATIENT

DRUGS (3)
  1. ORGOVYX [Suspect]
     Active Substance: RELUGOLIX
     Indication: Prostate cancer
     Dosage: 120 MG, QD
     Route: 048
     Dates: start: 20240910
  2. PREDNISONE [Suspect]
     Active Substance: PREDNISONE
     Route: 065
  3. ABIRATERONE [Concomitant]
     Active Substance: ABIRATERONE
     Route: 065

REACTIONS (12)
  - Urethral operation [Unknown]
  - Bowel movement irregularity [Unknown]
  - Muscle disorder [Unknown]
  - Gait disturbance [Unknown]
  - Sleep disorder [Recovering/Resolving]
  - Hyperhidrosis [Unknown]
  - Feeling hot [Unknown]
  - Hot flush [Not Recovered/Not Resolved]
  - Diarrhoea [Unknown]
  - Fatigue [Unknown]
  - Asthenia [Unknown]
  - Incorrect dose administered [Unknown]
